FAERS Safety Report 5934882-9 (Version None)
Quarter: 2008Q4

REPORT INFORMATION
  Report Type: 
  Country: None (occurrence: None)
  Receive Date: 20081027
  Receipt Date: 20081016
  Transmission Date: 20090506
  Serious: Yes (Hospitalization)
  Sender: FDA-Public Use
  Company Number: 2008BI021190

PATIENT
  Age: 61 Year
  Sex: Female

DRUGS (5)
  1. AVONEX [Suspect]
     Indication: MULTIPLE SCLEROSIS
     Dosage: 30 UG; QW; IM, 30 UG; QW; IM,  30 UG;QW; IM
     Route: 030
     Dates: start: 20010709, end: 20050109
  2. AVONEX [Suspect]
     Indication: MULTIPLE SCLEROSIS
     Dosage: 30 UG; QW; IM, 30 UG; QW; IM,  30 UG;QW; IM
     Route: 030
     Dates: start: 20050301, end: 20080120
  3. AVONEX [Suspect]
     Indication: MULTIPLE SCLEROSIS
     Dosage: 30 UG; QW; IM, 30 UG; QW; IM,  30 UG;QW; IM
     Route: 030
     Dates: start: 20080617, end: 20080728
  4. CYTOXAN [Concomitant]
  5. TYSARBRI [Concomitant]

REACTIONS (2)
  - ASTHENIA [None]
  - LOSS OF CONSCIOUSNESS [None]
